FAERS Safety Report 24072397 (Version 1)
Quarter: 2024Q3

REPORT INFORMATION
  Report Type: Spontaneous
  Country: US (occurrence: US)
  Receive Date: 20240710
  Receipt Date: 20240710
  Transmission Date: 20241017
  Serious: Yes (Other)
  Sender: BAUSCH AND LOMB
  Company Number: US-BAUSCHBL-2024BNL029456

PATIENT
  Age: 78 Year
  Sex: Male

DRUGS (3)
  1. MURO 128 [Suspect]
     Active Substance: SODIUM CHLORIDE
     Indication: Cataract
     Dosage: 1 DROP INTO THE LEFT EYE
     Route: 047
     Dates: start: 2024
  2. MURO 128 [Suspect]
     Active Substance: SODIUM CHLORIDE
     Indication: Product prescribing issue
     Route: 047
     Dates: start: 2024
  3. MURO 128 [Suspect]
     Active Substance: SODIUM CHLORIDE
     Route: 047
     Dates: start: 202406

REACTIONS (5)
  - Cataract [Unknown]
  - Ocular hyperaemia [Not Recovered/Not Resolved]
  - Eye oedema [Unknown]
  - Product prescribing error [Unknown]
  - Product prescribing issue [Unknown]

NARRATIVE: CASE EVENT DATE: 20240101
